FAERS Safety Report 21419872 (Version 1)
Quarter: 2022Q4

REPORT INFORMATION
  Report Type: Spontaneous
  Country: US (occurrence: None)
  Receive Date: 20221006
  Receipt Date: 20221006
  Transmission Date: 20230113
  Serious: Yes (Hospitalization)
  Sender: FDA-Public Use
  Company Number: None

PATIENT
  Sex: Female
  Weight: 59 kg

DRUGS (3)
  1. CYTARABINE [Suspect]
     Active Substance: CYTARABINE
  2. METHOTREXATE [Concomitant]
     Active Substance: METHOTREXATE
  3. PONATINIB [Concomitant]
     Active Substance: PONATINIB

REACTIONS (3)
  - Acute kidney injury [None]
  - Cortisol decreased [None]
  - Adrenal insufficiency [None]

NARRATIVE: CASE EVENT DATE: 20220630
